FAERS Safety Report 4379424-7 (Version None)
Quarter: 2004Q2

REPORT INFORMATION
  Report Type: 
  Country: None (occurrence: None)
  Receive Date: 20040614
  Receipt Date: 20040526
  Transmission Date: 20050107
  Serious: Yes (Other)
  Sender: FDA-Public Use
  Company Number: DSA_24486_2004

PATIENT
  Age: 47 Year
  Sex: Female

DRUGS (3)
  1. DILTIAZEM [Suspect]
     Indication: SINUS TACHYCARDIA
     Dosage: 120 MG Q DAY
  2. CARBAMAZEPINE [Suspect]
     Indication: BIPOLAR DISORDER
     Dosage: 800 MG ONCE
  3. CARBAMAZEPINE [Suspect]
     Indication: BIPOLAR DISORDER
     Dosage: 1600 MG Q DAY

REACTIONS (11)
  - AGITATION [None]
  - CEREBELLAR SYNDROME [None]
  - CONFUSIONAL STATE [None]
  - DISORIENTATION [None]
  - DRUG INTERACTION [None]
  - DRUG LEVEL INCREASED [None]
  - DYSARTHRIA [None]
  - GAZE PALSY [None]
  - NEUROTOXICITY [None]
  - OPHTHALMOPLEGIA [None]
  - SINUS TACHYCARDIA [None]
